FAERS Safety Report 15311850 (Version 1)
Quarter: 2018Q3

REPORT INFORMATION
  Report Type: Spontaneous
  Country: CN (occurrence: CN)
  Receive Date: 20180823
  Receipt Date: 20180823
  Transmission Date: 20181010
  Serious: Yes (Other)
  Sender: FDA-Public Use
  Company Number: CN-BAYER-2018-158892

PATIENT
  Sex: Female

DRUGS (1)
  1. YASMIN [Suspect]
     Active Substance: DROSPIRENONE\ETHINYL ESTRADIOL
     Indication: ENDOMETRIAL ATROPHY
     Dosage: UNK
     Dates: start: 2018

REACTIONS (3)
  - Off label use [None]
  - Product use in unapproved indication [None]
  - Surgery [None]

NARRATIVE: CASE EVENT DATE: 2018
